FAERS Safety Report 10143654 (Version 1)
Quarter: 2014Q2

REPORT INFORMATION
  Report Type: Spontaneous
  Country: US (occurrence: US)
  Receive Date: 20140430
  Receipt Date: 20140430
  Transmission Date: 20141212
  Serious: No
  Sender: FDA-Public Use
  Company Number: US-PFIZER INC-2014119104

PATIENT
  Sex: 0

DRUGS (2)
  1. EFFEXOR XR [Suspect]
     Dosage: 37.5 UNK, UNK
     Dates: start: 2014, end: 2014
  2. EFFEXOR XR [Suspect]
     Dosage: 75 UNK, 1X/DAY
     Dates: start: 2014

REACTIONS (1)
  - Memory impairment [Unknown]
